FAERS Safety Report 9691551 (Version 2)
Quarter: 2013Q4

REPORT INFORMATION
  Report Type: Spontaneous
  Country: US (occurrence: US)
  Receive Date: 20131115
  Receipt Date: 20131115
  Transmission Date: 20140711
  Serious: Yes (Hospitalization)
  Sender: FDA-Public Use
  Company Number: US-B.I. PHARMACEUTICALS,INC./RIDGEFIELD-2013-BI-16400BP

PATIENT
  Age: 39 Year
  Sex: Female
  Weight: 92.99 kg

DRUGS (5)
  1. PRADAXA [Suspect]
     Indication: ATRIAL FIBRILLATION
     Dosage: 300 MG
     Route: 048
     Dates: start: 20111121
  2. FERROUS SULFATE [Concomitant]
     Dosage: 650 MG
  3. LISINOPRIL [Concomitant]
     Dosage: 5 MG
     Dates: start: 2008
  4. DILANTIN [Concomitant]
     Dosage: 600 MG
  5. NEXIUM [Concomitant]
     Dosage: 40 MG

REACTIONS (4)
  - Femoral artery occlusion [Unknown]
  - Anaemia [Unknown]
  - Hypercoagulation [Unknown]
  - Gastrointestinal haemorrhage [Unknown]
